FAERS Safety Report 4806615-0 (Version None)
Quarter: 2005Q4

REPORT INFORMATION
  Report Type: 
  Country: None (occurrence: None)
  Receive Date: 20051021
  Receipt Date: 20051010
  Transmission Date: 20060501
  Serious: Yes (Death)
  Sender: FDA-Public Use
  Company Number: US-JNJFOC-20050601003

PATIENT
  Sex: Female
  Weight: 93.9 kg

DRUGS (3)
  1. ORTHO EVRA [Suspect]
     Indication: CONTRACEPTION
     Dosage: 150/20 STRENGTH
     Route: 062
  2. ALIEVE [Concomitant]
  3. FLEXERIL [Concomitant]

REACTIONS (8)
  - ANAEMIA [None]
  - CARDIO-RESPIRATORY ARREST [None]
  - DEEP VEIN THROMBOSIS [None]
  - ENCEPHALOPATHY [None]
  - HAEMORRHAGE [None]
  - HYPERCOAGULATION [None]
  - PULMONARY EMBOLISM [None]
  - RENAL FAILURE ACUTE [None]
